FAERS Safety Report 6358299-0 (Version None)
Quarter: 2009Q3

REPORT INFORMATION
  Report Type: 
  Country: None (occurrence: None)
  Receive Date: 20090916
  Receipt Date: 20090910
  Transmission Date: 20100115
  Serious: Yes (Hospitalization, Other)
  Sender: FDA-Public Use
  Company Number: PHHY2009BR37222

PATIENT
  Sex: Female

DRUGS (7)
  1. DIOVAN [Suspect]
     Indication: BLOOD PRESSURE
     Dosage: 80MG 2 TABLETS A DAY
     Route: 048
  2. PURAN T4 [Concomitant]
  3. SIMVASTATIN [Concomitant]
  4. PLAGIL [Concomitant]
  5. ISOSORBIDE MONONITRATE [Concomitant]
  6. ENALAPRIL MALEATE [Concomitant]
  7. AAS [Concomitant]

REACTIONS (5)
  - ANGINA PECTORIS [None]
  - ANGIOPLASTY [None]
  - CATHETERISATION CARDIAC [None]
  - DIABETES MELLITUS [None]
  - TOOTH LOSS [None]
